FAERS Safety Report 15995234 (Version 1)
Quarter: 2019Q1

REPORT INFORMATION
  Report Type: Spontaneous
  Country: US (occurrence: US)
  Receive Date: 20190129
  Receipt Date: 20190129
  Transmission Date: 20190418
  Serious: No
  Sender: FDA-Public Use
  Company Number: None

PATIENT
  Age: 41 Year
  Sex: Male

DRUGS (1)
  1. HARVONI [Suspect]
     Active Substance: LEDIPASVIR\SOFOSBUVIR
     Indication: CHRONIC HEPATITIS C
     Dosage: ?          OTHER DOSE:90/200MG ONCE A DAILY BY MOUTH?
     Route: 048
     Dates: start: 20190105

REACTIONS (2)
  - Fatigue [None]
  - Migraine [None]

NARRATIVE: CASE EVENT DATE: 20190110
